FAERS Safety Report 7568686-0 (Version None)
Quarter: 2011Q2

REPORT INFORMATION
  Report Type: 
  Country: None (occurrence: None)
  Receive Date: 20110623
  Receipt Date: 20110610
  Transmission Date: 20111010
  Serious: Yes (Other)
  Sender: FDA-Public Use
  Company Number: US-JNJFOC-20110608199

PATIENT
  Age: 27 Year
  Sex: Female
  Weight: 88.45 kg

DRUGS (1)
  1. PRECISE EXTRA STRENGTH PAIN RELIEVING CREAM [Suspect]
     Indication: MUSCLE DISORDER
     Dosage: A NICKEL-SIZED AMOUNT
     Route: 061
     Dates: start: 20110610, end: 20110610

REACTIONS (5)
  - APPLICATION SITE PAIN [None]
  - APPLICATION SITE VESICLES [None]
  - APPLICATION SITE ERYTHEMA [None]
  - PRODUCT QUALITY ISSUE [None]
  - APPLICATION SITE EXFOLIATION [None]
